FAERS Safety Report 5900964-0 (Version None)
Quarter: 2008Q3

REPORT INFORMATION
  Report Type: 
  Country: None (occurrence: None)
  Receive Date: 20080929
  Receipt Date: 20080916
  Transmission Date: 20090109
  Serious: Yes (Hospitalization, Other)
  Sender: FDA-Public Use
  Company Number: US-BAYER-200833797NA

PATIENT
  Age: 10 Year
  Sex: Female
  Weight: 26 kg

DRUGS (25)
  1. CAMPATH [Suspect]
     Indication: RENAL TRANSPLANT
     Dosage: TOTAL DAILY DOSE: 8 MG
     Route: 042
     Dates: start: 20060328, end: 20060328
  2. CAMPATH [Suspect]
     Dosage: TOTAL DAILY DOSE: 7.5 MG
     Route: 042
     Dates: start: 20060330, end: 20060330
  3. PROGRAF [Concomitant]
     Dates: start: 20060330
  4. PROGRAF [Concomitant]
     Dates: start: 20060922
  5. SIROLIMUS [Concomitant]
  6. IRON [Concomitant]
     Dates: start: 20060509
  7. CEPHALEXIN [Concomitant]
     Dates: start: 20061013
  8. LANSOPRAZOLE [Concomitant]
     Dates: start: 20061004
  9. RANITIDINE [Concomitant]
     Dates: start: 20061004
  10. LEXAPRO [Concomitant]
     Dates: start: 20061015
  11. LORAZEPAM [Concomitant]
     Dates: start: 20061004
  12. NEUPOGEN [Concomitant]
     Dates: start: 20060330
  13. NEUPOGEN [Concomitant]
     Dates: start: 20060609
  14. DAPSONE [Concomitant]
  15. NIFEREX [Concomitant]
  16. VALGANCICLOVIR HCL [Concomitant]
     Dates: start: 20060810
  17. LANSOPRAZOLE [Concomitant]
  18. NYSTATIN [Concomitant]
     Dates: start: 20060329
  19. TYLENOL W/ CODEINE [Concomitant]
  20. LIDOCAINE [Concomitant]
     Route: 061
  21. CIPROFLOXACIN [Concomitant]
  22. CLINDAMYCIN HCL [Concomitant]
  23. EPOGEN [Concomitant]
  24. LACTOBACILLUS [Concomitant]
  25. RED BLOOD CELLS [Concomitant]
     Dosage: AS USED: 2 U
     Dates: start: 20080817

REACTIONS (5)
  - EPIPHYSEAL DISORDER [None]
  - KIDNEY TRANSPLANT REJECTION [None]
  - POSTOPERATIVE WOUND COMPLICATION [None]
  - PYREXIA [None]
  - SUTURE REMOVAL [None]
